FAERS Safety Report 8301433-3 (Version None)
Quarter: 2012Q2

REPORT INFORMATION
  Report Type: 
  Country: None (occurrence: None)
  Receive Date: 20120420
  Receipt Date: 20120410
  Transmission Date: 20120825
  Serious: Yes (Other)
  Sender: FDA-Public Use
  Company Number: US-JNJFOC-20120405136

PATIENT
  Sex: Male
  Weight: 29.7 kg

DRUGS (2)
  1. HUMIRA [Concomitant]
     Dates: start: 20080319
  2. INFLIXIMAB, RECOMBINANT [Suspect]
     Indication: INFLAMMATORY BOWEL DISEASE
     Route: 042
     Dates: start: 20050921

REACTIONS (1)
  - ABDOMINAL PAIN LOWER [None]
